FAERS Safety Report 8404624-6 (Version None)
Quarter: 2012Q2

REPORT INFORMATION
  Report Type: 
  Country: None (occurrence: None)
  Receive Date: 20120601
  Receipt Date: 20111220
  Transmission Date: 20120825
  Serious: No
  Sender: FDA-Public Use
  Company Number: US-NOVEN-11US003828

PATIENT
  Sex: Female
  Weight: 48.526 kg

DRUGS (5)
  1. EFFEXOR [Concomitant]
     Indication: ATTENTION DEFICIT/HYPERACTIVITY DISORDER
     Dosage: 75 MG, UNK
     Route: 048
  2. METHYLPHENIDATE [Concomitant]
     Indication: ATTENTION DEFICIT/HYPERACTIVITY DISORDER
     Dosage: 20 MG, UNK
     Route: 048
  3. CALCIUM + VITAMIN D                /01483701/ [Concomitant]
     Indication: HYPOVITAMINOSIS
     Dosage: 1500 MG, UNK
     Route: 048
  4. VITAMIN D [Concomitant]
     Indication: PRODUCT USED FOR UNKNOWN INDICATION
     Dosage: 5000 IU, UNK
     Route: 048
  5. DAYTRANA [Suspect]
     Indication: ATTENTION DEFICIT/HYPERACTIVITY DISORDER
     Dosage: 30 MG, UNK
     Route: 062
     Dates: start: 20070101

REACTIONS (6)
  - DRUG ADMINISTERED AT INAPPROPRIATE SITE [None]
  - OFF LABEL USE [None]
  - DRUG HYPERSENSITIVITY [None]
  - FOOD ALLERGY [None]
  - HYPOTHYROIDISM [None]
  - PRODUCT QUALITY ISSUE [None]
